FAERS Safety Report 5049102-X (Version None)
Quarter: 2006Q3

REPORT INFORMATION
  Report Type: 
  Country: None (occurrence: None)
  Receive Date: 20060706
  Receipt Date: 20060623
  Transmission Date: 20061208
  Serious: Yes (Hospitalization)
  Sender: FDA-Public Use
  Company Number: 2006079818

PATIENT
  Age: 89 Year
  Sex: Female

DRUGS (2)
  1. TOLTERODINE TARTRATE [Suspect]
     Indication: POLLAKIURIA
     Dosage: 4 MG, ORAL
     Route: 048
     Dates: start: 20060612, end: 20060614
  2. FUROSEMIDE [Concomitant]

REACTIONS (3)
  - DIABETES MELLITUS [None]
  - NEUROGENIC BLADDER [None]
  - URINARY RETENTION [None]
